FAERS Safety Report 12850871 (Version 3)
Quarter: 2017Q1

REPORT INFORMATION
  Report Type: Report from Study
  Country: JP (occurrence: JP)
  Receive Date: 20161014
  Receipt Date: 20170210
  Transmission Date: 20170428
  Serious: Yes (Hospitalization, Other)
  Sender: FDA-Public Use
  Company Number: JP-ASTRAZENECA-2015SE78538

PATIENT
  Age: 29980 Day
  Sex: Male
  Weight: 63.5 kg

DRUGS (33)
  1. ONGLYZA [Suspect]
     Active Substance: SAXAGLIPTIN HYDROCHLORIDE
     Indication: TYPE 2 DIABETES MELLITUS
     Route: 048
     Dates: start: 20150512
  2. FLUITRAN [Concomitant]
     Active Substance: TRICHLORMETHIAZIDE
     Indication: HYPERTENSION
     Route: 048
  3. MICARDIS [Concomitant]
     Active Substance: TELMISARTAN
     Indication: HYPERTENSION
     Route: 048
  4. MYSLEE [Concomitant]
     Active Substance: ZOLPIDEM TARTRATE
     Indication: INSOMNIA
     Route: 048
  5. MIRCERA [Concomitant]
     Active Substance: METHOXY POLYETHYLENE GLYCOL-EPOETIN BETA
     Indication: CHRONIC KIDNEY DISEASE
     Route: 042
  6. ONGLYZA [Suspect]
     Active Substance: SAXAGLIPTIN HYDROCHLORIDE
     Indication: TYPE 2 DIABETES MELLITUS
     Route: 048
     Dates: start: 20150206, end: 20150331
  7. CELESTAMINE [Suspect]
     Active Substance: BETAMETHASONE\DEXCHLORPHENIRAMINE MALEATE
     Indication: PRURITUS
     Route: 048
  8. FUROSEMIDE. [Concomitant]
     Active Substance: FUROSEMIDE
     Indication: HYPERTENSION
     Route: 048
  9. HEPARIN SODIUM. [Concomitant]
     Active Substance: HEPARIN SODIUM
  10. SOLDEM 1 [Concomitant]
     Active Substance: DEXTROSE\SODIUM CHLORIDE\SODIUM LACTATE
     Route: 042
  11. SOL-MELCORT [Concomitant]
     Active Substance: METHYLPREDNISOLONE SODIUM SUCCINATE
     Route: 042
  12. SODIUM BICARBONATE. [Concomitant]
     Active Substance: SODIUM BICARBONATE
     Route: 048
  13. BAYASPIRIN [Concomitant]
     Active Substance: ASPIRIN
     Indication: CEREBRAL INFARCTION
     Route: 048
  14. CRESTOR [Concomitant]
     Active Substance: ROSUVASTATIN CALCIUM
     Indication: HYPERLIPIDAEMIA
     Route: 048
  15. MECOBALAMIN [Concomitant]
     Active Substance: METHYLCOBALAMIN
     Indication: SPINAL OSTEOARTHRITIS
     Route: 048
  16. ISOTONIC SODIUM CHLORIDE SOLUTION [Concomitant]
     Active Substance: SODIUM CHLORIDE
  17. ZOLPIDEM [Concomitant]
     Active Substance: ZOLPIDEM\ZOLPIDEM TARTRATE
     Indication: INSOMNIA
     Route: 048
  18. CILNIDIPINE [Concomitant]
     Active Substance: CILNIDIPINE
     Indication: HYPERTENSION
     Route: 048
  19. SARUTU [Concomitant]
     Indication: SPINAL OSTEOARTHRITIS
     Route: 048
  20. WARFARIN [Suspect]
     Active Substance: WARFARIN
     Indication: MYOCARDIAL INFARCTION
     Route: 048
     Dates: start: 20150407
  21. SENNA [Concomitant]
     Active Substance: SENNA LEAF\SENNOSIDES\SENNOSIDES A AND B
     Route: 048
  22. ARGAMATE [Concomitant]
     Active Substance: CALCIUM POLYSTYRENE SULFONATE
     Dosage: JELLY
     Route: 048
  23. ARTIST [Concomitant]
     Active Substance: CARVEDILOL
     Indication: HYPERTENSION
     Route: 048
  24. FERROMIA [Concomitant]
     Active Substance: FERROUS CITRATE
     Indication: CHRONIC KIDNEY DISEASE
     Route: 048
  25. ASACOL [Concomitant]
     Active Substance: MESALAMINE
     Indication: COLITIS ULCERATIVE
     Route: 048
  26. NEUROTROPIN [Concomitant]
     Active Substance: NEUROTROPIN
     Indication: SPINAL OSTEOARTHRITIS
     Route: 048
  27. CARBAZOCHROME SODIUM SULFONATE HYDRATE [Concomitant]
     Route: 042
  28. WARFARIN [Suspect]
     Active Substance: WARFARIN
     Indication: MYOCARDIAL INFARCTION
     Route: 048
     Dates: end: 20150330
  29. WARFARIN [Suspect]
     Active Substance: WARFARIN
     Indication: MYOCARDIAL INFARCTION
     Route: 048
     Dates: start: 20150728
  30. NEXIUM [Concomitant]
     Active Substance: ESOMEPRAZOLE MAGNESIUM
     Route: 048
  31. FEBURIC [Concomitant]
     Active Substance: FEBUXOSTAT
     Route: 048
  32. LYRICA [Concomitant]
     Active Substance: PREGABALIN
     Indication: SPINAL OSTEOARTHRITIS
     Route: 048
  33. TRANEXAMIC ACID. [Concomitant]
     Active Substance: TRANEXAMIC ACID

REACTIONS (6)
  - Spinal compression fracture [Recovering/Resolving]
  - Haemorrhage subcutaneous [Recovered/Resolved]
  - Hyperkalaemia [Recovered/Resolved]
  - Obstructive airways disorder [Recovered/Resolved]
  - Large intestine polyp [Recovered/Resolved]
  - Altered state of consciousness [Recovered/Resolved]

NARRATIVE: CASE EVENT DATE: 20150305
